FAERS Safety Report 20089993 (Version 1)
Quarter: 2021Q4

REPORT INFORMATION
  Report Type: Spontaneous
  Country: US (occurrence: None)
  Receive Date: 20211118
  Receipt Date: 20211118
  Transmission Date: 20220303
  Serious: Yes (Hospitalization)
  Sender: FDA-Public Use
  Company Number: None

PATIENT
  Sex: Female

DRUGS (1)
  1. CAPECITABINE [Suspect]
     Active Substance: CAPECITABINE
     Indication: Metastases to bone
     Dosage: OTHER FREQUENCY : SEE ADD^L COMMENTS;?
     Route: 048
     Dates: start: 20211002, end: 202111

REACTIONS (2)
  - White blood cell count decreased [None]
  - Therapy cessation [None]
